FAERS Safety Report 24844834 (Version 1)
Quarter: 2025Q1

REPORT INFORMATION
  Report Type: Spontaneous
  Country: JP (occurrence: JP)
  Receive Date: 20250115
  Receipt Date: 20250115
  Transmission Date: 20250409
  Serious: Yes (Other)
  Sender: NOVARTIS
  Company Number: JP-002147023-NVSJ2025JP000633

PATIENT
  Sex: Female

DRUGS (1)
  1. NEORAL [Suspect]
     Active Substance: CYCLOSPORINE
     Indication: Multiple sclerosis
     Route: 048

REACTIONS (9)
  - Actinomycotic abdominal infection [Unknown]
  - Abdominal pain [Unknown]
  - Pyrexia [Unknown]
  - Vision blurred [Unknown]
  - Visual acuity reduced [Unknown]
  - Gait disturbance [Unknown]
  - Eyelid ptosis [Unknown]
  - Neck pain [Unknown]
  - Off label use [Unknown]
